FAERS Safety Report 5910974-5 (Version None)
Quarter: 2008Q4

REPORT INFORMATION
  Report Type: 
  Country: None (occurrence: None)
  Receive Date: 20081003
  Receipt Date: 20081003
  Transmission Date: 20090506
  Serious: No
  Sender: FDA-Public Use
  Company Number: None

PATIENT
  Age: 54 Year
  Sex: Female

DRUGS (1)
  1. ENBREL [Suspect]
     Indication: PSORIASIS
     Dosage: 50MG  TWICE WEEKLY  SQ
     Route: 058
     Dates: start: 20070425, end: 20081001

REACTIONS (1)
  - HAEMORRHAGE [None]
